FAERS Safety Report 11206454 (Version 1)
Quarter: 2015Q2

REPORT INFORMATION
  Report Type: Spontaneous
  Country: US (occurrence: None)
  Receive Date: 20150619
  Receipt Date: 20150619
  Transmission Date: 20150821
  Serious: Yes (Hospitalization)
  Sender: FDA-Public Use
  Company Number: None

PATIENT
  Age: 81 Year
  Sex: Female

DRUGS (27)
  1. WARFARIN [Suspect]
     Active Substance: WARFARIN
     Indication: ATRIAL FIBRILLATION
     Route: 048
  2. DIGOXIN. [Concomitant]
     Active Substance: DIGOXIN
  3. VITAMIN D [Concomitant]
     Active Substance: CHOLECALCIFEROL
  4. FUROSEMID [Concomitant]
     Active Substance: FUROSEMIDE
  5. SEPTRA DS [Suspect]
     Active Substance: SULFAMETHOXAZOLE\TRIMETHOPRIM
     Route: 048
  6. SIMVASTATIN. [Concomitant]
     Active Substance: SIMVASTATIN
  7. CALTRATE [Concomitant]
     Active Substance: CALCIUM CARBONATE
  8. DOXYCYCLINE. [Suspect]
     Active Substance: DOXYCYCLINE
     Route: 048
  9. LYRICA [Concomitant]
     Active Substance: PREGABALIN
  10. BENADRYL [Concomitant]
     Active Substance: DIPHENHYDRAMINE HYDROCHLORIDE
  11. COLACE [Concomitant]
     Active Substance: DOCUSATE SODIUM
  12. VITAMIN C [Concomitant]
     Active Substance: ASCORBIC ACID
  13. FLEXERIL [Concomitant]
     Active Substance: CYCLOBENZAPRINE HYDROCHLORIDE
  14. NYSTATIN. [Concomitant]
     Active Substance: NYSTATIN
  15. METOLAZONE. [Concomitant]
     Active Substance: METOLAZONE
  16. FEXOFENADINE [Concomitant]
     Active Substance: FEXOFENADINE\FEXOFENADINE HYDROCHLORIDE
  17. CALCITONIN [Concomitant]
     Active Substance: CALCITONIN
  18. SPIRONOLACTONE. [Concomitant]
     Active Substance: SPIRONOLACTONE
  19. PROTONIX [Concomitant]
     Active Substance: PANTOPRAZOLE SODIUM
  20. SOTALOL. [Concomitant]
     Active Substance: SOTALOL
  21. FLONASE [Concomitant]
     Active Substance: FLUTICASONE PROPIONATE
  22. APAP [Concomitant]
     Active Substance: ACETAMINOPHEN
  23. TESSALON [Concomitant]
     Active Substance: BENZONATATE
  24. HYDROCODONE/APAP [Concomitant]
     Active Substance: ACETAMINOPHEN\HYDROCODONE
  25. KCL [Concomitant]
     Active Substance: POTASSIUM CHLORIDE
  26. LISINOPRIL. [Concomitant]
     Active Substance: LISINOPRIL
  27. ZINC [Concomitant]
     Active Substance: ZINC\ZINC CHLORIDE

REACTIONS (8)
  - Skin necrosis [None]
  - International normalised ratio increased [None]
  - Vasculitis [None]
  - Refusal of treatment by patient [None]
  - Drug interaction [None]
  - Eschar [None]
  - Wound infection [None]
  - Skin haemorrhage [None]

NARRATIVE: CASE EVENT DATE: 20140407
